FAERS Safety Report 7834718-5 (Version None)
Quarter: 2011Q4

REPORT INFORMATION
  Report Type: 
  Country: None (occurrence: None)
  Receive Date: 20111024
  Receipt Date: 20111013
  Transmission Date: 20120403
  Serious: Yes (Other)
  Sender: FDA-Public Use
  Company Number: US-JNJFOC-20111006830

PATIENT
  Sex: Male
  Weight: 83.92 kg

DRUGS (9)
  1. PRILOSEC [Concomitant]
     Indication: GASTRIC DISORDER
     Route: 048
  2. MECLIZINE [Concomitant]
     Indication: DIZZINESS
     Route: 048
  3. ZYTIGA [Suspect]
     Indication: PROSTATE CANCER METASTATIC
     Route: 048
     Dates: start: 20110801
  4. PREDNISONE [Concomitant]
     Indication: PROSTATE CANCER
     Route: 048
     Dates: start: 20110801
  5. MULTI-VITAMINS [Concomitant]
     Indication: VITAMIN SUPPLEMENTATION
     Route: 048
  6. METOPROLOL TARTRATE [Concomitant]
     Indication: CARDIAC DISORDER
     Route: 048
  7. OXYCODONE HCL [Concomitant]
     Indication: PAIN
     Route: 048
  8. NIFEDIPINE [Concomitant]
     Indication: HYPERTENSION
     Route: 048
  9. ATIVAN [Concomitant]
     Indication: ANXIETY
     Route: 048

REACTIONS (1)
  - METASTATIC PAIN [None]
